FAERS Safety Report 14578672 (Version 2)
Quarter: 2018Q4

REPORT INFORMATION
  Report Type: Spontaneous
  Country: US (occurrence: US)
  Receive Date: 20180227
  Receipt Date: 20181016
  Transmission Date: 20190204
  Serious: Yes (Other)
  Sender: FDA-Public Use
  Company Number: US-DSJP-DSU-2017-148148

PATIENT

DRUGS (2)
  1. BENICAR [Suspect]
     Active Substance: OLMESARTAN MEDOXOMIL
     Indication: PRODUCT USED FOR UNKNOWN INDICATION
     Dosage: 20 MG QD
     Route: 048
  2. BENICAR HCT [Suspect]
     Active Substance: HYDROCHLOROTHIAZIDE\OLMESARTAN MEDOXOMIL
     Indication: HYPERTENSION
     Dosage: 40/25 MG, QD
     Route: 048
     Dates: start: 20030101

REACTIONS (10)
  - Gastric ulcer haemorrhage [Not Recovered/Not Resolved]
  - Sprue-like enteropathy [Recovering/Resolving]
  - Oesophagitis [Not Recovered/Not Resolved]
  - Ileal ulcer [Not Recovered/Not Resolved]
  - Hiatus hernia [Unknown]
  - Vitello-intestinal duct remnant [Unknown]
  - Large intestine polyp [Unknown]
  - Haemorrhoids [Not Recovered/Not Resolved]
  - Gastritis erosive [Recovering/Resolving]
  - Enteritis [Not Recovered/Not Resolved]

NARRATIVE: CASE EVENT DATE: 2003
